FAERS Safety Report 7225407-9 (Version None)
Quarter: 2011Q1

REPORT INFORMATION
  Report Type: 
  Country: None (occurrence: None)
  Receive Date: 20110107
  Receipt Date: 20110107
  Transmission Date: 20110831
  Serious: No
  Sender: FDA-Public Use
  Company Number: None

PATIENT
  Sex: Male
  Weight: 102.0593 kg

DRUGS (2)
  1. DAPSONE [Suspect]
     Indication: HIV INFECTION
     Dosage: 10MG DAILY
  2. ZERIT [Suspect]
     Indication: HIV INFECTION
     Dosage: PER LABEL DAILY

REACTIONS (1)
  - NEUROPATHY PERIPHERAL [None]
